FAERS Safety Report 9524986 (Version 1)
Quarter: 2013Q1

REPORT INFORMATION
  Report Type: Spontaneous
  Country: US (occurrence: None)
  Receive Date: 20130314
  Receipt Date: 20130314
  Transmission Date: 20140127
  Serious: No
  Sender: FDA-Public Use
  Company Number: 1301USA005853

PATIENT
  Age: 53 Year
  Sex: Male

DRUGS (4)
  1. VICTRELIS (BOCEPREVIR) CAPSULE [Suspect]
     Indication: HEPATITIS C
     Dosage: 800 MG, TID, ORAL
     Route: 048
     Dates: start: 20120420
  2. RIBASPHERE (RIBAVIRIN) [Concomitant]
  3. PEGASYS (PEGINTRFERON ALFA-2A) [Concomitant]
  4. PROCRIT [Concomitant]

REACTIONS (3)
  - Dysphonia [None]
  - Increased upper airway secretion [None]
  - Cough [None]
